FAERS Safety Report 10426545 (Version 14)
Quarter: 2022Q1

REPORT INFORMATION
  Report Type: Spontaneous
  Country: US (occurrence: US)
  Receive Date: 20140903
  Receipt Date: 20220124
  Transmission Date: 20220423
  Serious: Yes (Other)
  Sender: FDA-Public Use
  Company Number: US-PFIZER INC-2014240288

PATIENT
  Age: 75 Year
  Sex: Female

DRUGS (6)
  1. DETROL LA [Suspect]
     Active Substance: TOLTERODINE TARTRATE
     Indication: Hypertonic bladder
     Dosage: 4 MG
     Dates: start: 2012
  2. DETROL LA [Suspect]
     Active Substance: TOLTERODINE TARTRATE
     Dosage: 2 MG
  3. DETROL LA [Suspect]
     Active Substance: TOLTERODINE TARTRATE
     Dosage: 4 MG
     Dates: start: 20130301
  4. DETROL LA [Suspect]
     Active Substance: TOLTERODINE TARTRATE
     Dosage: 4 MG
     Dates: start: 20130315, end: 20210301
  5. ZETIA [Concomitant]
     Active Substance: EZETIMIBE
     Indication: Blood cholesterol abnormal
     Dosage: 10 MG, UNK
  6. ACTONEL [Concomitant]
     Active Substance: RISEDRONATE SODIUM
     Indication: Bone disorder
     Dosage: 150 MG, MONTHLY

REACTIONS (27)
  - Near death experience [Recovered/Resolved]
  - Blood pressure increased [Recovered/Resolved]
  - Hand fracture [Unknown]
  - Cerebrovascular accident [Unknown]
  - Haemorrhoids [Unknown]
  - Dry mouth [Recovered/Resolved]
  - Oropharyngeal pain [Recovered/Resolved]
  - Chest pain [Recovered/Resolved]
  - Musculoskeletal chest pain [Recovered/Resolved]
  - Gastrooesophageal reflux disease [Unknown]
  - Flatulence [Recovered/Resolved]
  - Eructation [Recovered/Resolved]
  - Extrasystoles [Recovered/Resolved]
  - Neck pain [Unknown]
  - Abdominal pain [Unknown]
  - Flushing [Unknown]
  - Hypotension [Unknown]
  - Hypersensitivity [Unknown]
  - Laryngeal pain [Unknown]
  - Extrasystoles [Unknown]
  - Cardiac discomfort [Unknown]
  - Nausea [Unknown]
  - Weight decreased [Unknown]
  - Dyspepsia [Unknown]
  - Throat irritation [Unknown]
  - Abdominal pain upper [Unknown]
  - Drug ineffective [Unknown]

NARRATIVE: CASE EVENT DATE: 20130101
